FAERS Safety Report 16280589 (Version 4)
Quarter: 2020Q1

REPORT INFORMATION
  Report Type: Report from Study
  Country: None (occurrence: BR)
  Receive Date: 20190507
  Receipt Date: 20200103
  Transmission Date: 20200409
  Serious: Yes (Other)
  Sender: FDA-Public Use
  Company Number: BR-ABBVIE-19K-020-2764843-00

PATIENT
  Age: 83 Year
  Sex: Female
  Weight: 53 kg

DRUGS (4)
  1. HUMIRA [Suspect]
     Active Substance: ADALIMUMAB
     Indication: RHEUMATOID ARTHRITIS
     Route: 058
     Dates: start: 20130701
  2. PREDNISONE. [Concomitant]
     Active Substance: PREDNISONE
     Indication: RHEUMATOID ARTHRITIS
  3. PREDNISONE. [Concomitant]
     Active Substance: PREDNISONE
  4. TENOXICAM [Concomitant]
     Active Substance: TENOXICAM
     Indication: PAIN

REACTIONS (13)
  - Spleen disorder [Unknown]
  - Erysipelas [Recovered/Resolved]
  - Decreased appetite [Recovered/Resolved]
  - Dysphonia [Unknown]
  - Asthenia [Unknown]
  - Abdominal pain [Unknown]
  - Abdominal distension [Unknown]
  - Weight decreased [Recovered/Resolved]
  - Hypophagia [Unknown]
  - Influenza [Unknown]
  - Weight decreased [Recovered/Resolved]
  - Muscle disorder [Recovered/Resolved]
  - Myalgia [Unknown]

NARRATIVE: CASE EVENT DATE: 2019
